FAERS Safety Report 24941834 (Version 1)
Quarter: 2025Q1

REPORT INFORMATION
  Report Type: Spontaneous
  Country: US (occurrence: US)
  Receive Date: 20250207
  Receipt Date: 20250207
  Transmission Date: 20250409
  Serious: No
  Sender: TEVA
  Company Number: US-TEVA-VS-3292182

PATIENT
  Age: 79 Year
  Sex: Female

DRUGS (1)
  1. AJOVY [Suspect]
     Active Substance: FREMANEZUMAB-VFRM
     Indication: Product used for unknown indication
     Dosage: AUTO-INJECTOR PEN, INJECTING UNDER THE SKIN ONCE MONTHLY, 225/1.5MG/ML
     Route: 065
     Dates: start: 20240327

REACTIONS (1)
  - Cystitis [Unknown]
